FAERS Safety Report 12836890 (Version 1)
Quarter: 2016Q4

REPORT INFORMATION
  Report Type: Spontaneous
  Country: PR (occurrence: PR)
  Receive Date: 20161011
  Receipt Date: 20161011
  Transmission Date: 20170207
  Serious: Yes (Death)
  Sender: FDA-Public Use
  Company Number: PR-R-PHARM US LLC-2016RPM00037

PATIENT
  Sex: Female

DRUGS (1)
  1. IXEMPRA [Suspect]
     Active Substance: IXABEPILONE
     Dosage: UNK, EVERY 3 WEEKS
     Dates: start: 20160201

REACTIONS (1)
  - Death [Fatal]
